FAERS Safety Report 7322739-0 (Version None)
Quarter: 2011Q1

REPORT INFORMATION
  Report Type: 
  Country: None (occurrence: None)
  Receive Date: 20110216
  Receipt Date: 20110201
  Transmission Date: 20110831
  Serious: Yes (Hospitalization)
  Sender: FDA-Public Use
  Company Number: 2011000643

PATIENT
  Age: 72 Year
  Sex: Female

DRUGS (9)
  1. ERLOTINIB (ERLOTINIB) (TABLET) (ERLOTINIB) [Suspect]
     Indication: NON-SMALL CELL LUNG CANCER
     Dosage: (150 MG, 1 IN 1 D), ORAL
     Route: 048
     Dates: start: 20101006, end: 20110131
  2. HYALURONATE SODIUM (HYALURONATE SODIUM) [Concomitant]
  3. LIDOMEX (PREDNISOLONE VALEROACETATE) [Concomitant]
  4. HACHIAZULE (HACHIAZULE) [Concomitant]
  5. ANTEBATE (BETAMETHASONE BUTYRATE PROPIONATE) [Concomitant]
  6. HIRUDOID (HEPARINOID) [Concomitant]
  7. RINDERON-VG (VALISONE-G) [Concomitant]
  8. FLUVASTATIN [Concomitant]
  9. KARY UNI (PIRENOXINE) [Concomitant]

REACTIONS (4)
  - RETINAL DETACHMENT [None]
  - KERATOPATHY [None]
  - RASH [None]
  - FALL [None]
